FAERS Safety Report 11539543 (Version 1)
Quarter: 2015Q3

REPORT INFORMATION
  Report Type: Spontaneous
  Country: GB (occurrence: GB)
  Receive Date: 20150923
  Receipt Date: 20150923
  Transmission Date: 20151125
  Serious: Yes (Other)
  Sender: FDA-Public Use
  Company Number: GB-TEVA-593573ACC

PATIENT
  Age: 49 Year
  Sex: Female
  Weight: 65.31 kg

DRUGS (3)
  1. CONTRACEPTIVE PILL [Concomitant]
  2. BISOPROLOL [Suspect]
     Active Substance: BISOPROLOL
     Indication: HEART RATE INCREASED
     Route: 048
     Dates: start: 201501, end: 201508
  3. AMITRIPTYLINE [Concomitant]
     Active Substance: AMITRIPTYLINE

REACTIONS (3)
  - Arthralgia [Recovering/Resolving]
  - Back pain [Recovering/Resolving]
  - Musculoskeletal pain [Recovering/Resolving]

NARRATIVE: CASE EVENT DATE: 20150201
